FAERS Safety Report 17576674 (Version 2)
Quarter: 2020Q2

REPORT INFORMATION
  Report Type: Report from Study
  Country: IT (occurrence: IT)
  Receive Date: 20200324
  Receipt Date: 20200401
  Transmission Date: 20200713
  Serious: Yes (Other)
  Sender: FDA-Public Use
  Company Number: IT-TEVA-2020-IT-1208670

PATIENT
  Age: 50 Year
  Sex: Female

DRUGS (1)
  1. LETROZOLO TEVA [Suspect]
     Active Substance: LETROZOLE
     Indication: BREAST NEOPLASM
     Dosage: 2.5 MILLIGRAM
     Route: 048
     Dates: start: 20181001, end: 20190101

REACTIONS (3)
  - Vertigo [Recovered/Resolved]
  - Hypertensive crisis [Recovered/Resolved]
  - Angina pectoris [Recovered/Resolved]

NARRATIVE: CASE EVENT DATE: 20181001
